FAERS Safety Report 15999575 (Version 1)
Quarter: 2019Q1

REPORT INFORMATION
  Report Type: Spontaneous
  Country: US (occurrence: US)
  Receive Date: 20190222
  Receipt Date: 20190222
  Transmission Date: 20190418
  Serious: Yes (Other)
  Sender: FDA-Public Use
  Company Number: None

PATIENT
  Age: 64 Year
  Sex: Female
  Weight: 76.5 kg

DRUGS (1)
  1. COLESTIPOL 1GM [Suspect]
     Active Substance: COLESTIPOL
     Indication: DIARRHOEA
     Dosage: ?          QUANTITY:340 TABLET(S);?
     Route: 048
     Dates: start: 20190125, end: 20190215

REACTIONS (5)
  - Dysphagia [None]
  - Hyperhidrosis [None]
  - Dyspnoea [None]
  - Chest pain [None]
  - Pain in jaw [None]

NARRATIVE: CASE EVENT DATE: 20190214
